FAERS Safety Report 7020671-3 (Version None)
Quarter: 2010Q3

REPORT INFORMATION
  Report Type: 
  Country: None (occurrence: None)
  Receive Date: 20100929
  Receipt Date: 20100917
  Transmission Date: 20110219
  Serious: Yes (Hospitalization)
  Sender: FDA-Public Use
  Company Number: US-JNJFOC-20100906605

PATIENT
  Sex: Female
  Weight: 61.8 kg

DRUGS (3)
  1. REMICADE [Suspect]
     Indication: INFLAMMATORY BOWEL DISEASE
     Route: 042
  2. ANTIBIOTIC [Concomitant]
     Indication: IRRITABLE BOWEL SYNDROME
  3. HYDROCODONE BITARTRATE AND ACETAMINOPHEN [Concomitant]

REACTIONS (1)
  - SUBCUTANEOUS ABSCESS [None]
